FAERS Safety Report 16196739 (Version 2)
Quarter: 2019Q2

REPORT INFORMATION
  Report Type: Report from Study
  Country: PL (occurrence: PL)
  Receive Date: 20190415
  Receipt Date: 20190502
  Transmission Date: 20190711
  Serious: Yes (Death)
  Sender: FDA-Public Use
  Company Number: PL-REGENERON PHARMACEUTICALS, INC.-2019-25870

PATIENT

DRUGS (13)
  1. EYLEA [Suspect]
     Active Substance: AFLIBERCEPT
     Dosage: 2 MG
     Route: 031
     Dates: start: 20170522, end: 20170522
  2. EYLEA [Suspect]
     Active Substance: AFLIBERCEPT
     Dosage: 2 MG
     Route: 031
     Dates: start: 20170306, end: 20170306
  3. EYLEA [Suspect]
     Active Substance: AFLIBERCEPT
     Dosage: 2 MG
     Route: 031
     Dates: start: 20170821, end: 20170821
  4. EYLEA [Suspect]
     Active Substance: AFLIBERCEPT
     Dosage: 2 MG
     Route: 031
     Dates: start: 20171204, end: 20171204
  5. EYLEA [Suspect]
     Active Substance: AFLIBERCEPT
     Dosage: 2 MG
     Route: 031
     Dates: start: 20190204, end: 20190204
  6. EYLEA [Suspect]
     Active Substance: AFLIBERCEPT
     Dosage: 2 MG
     Route: 031
     Dates: start: 20170109, end: 20170109
  7. EYLEA [Suspect]
     Active Substance: AFLIBERCEPT
     Dosage: 2 MG
     Route: 031
     Dates: start: 20181112, end: 20181112
  8. EYLEA [Suspect]
     Active Substance: AFLIBERCEPT
     Dosage: 2 MG
     Route: 031
     Dates: start: 20161118, end: 20161118
  9. EYLEA [Suspect]
     Active Substance: AFLIBERCEPT
     Dosage: 2 MG
     Route: 031
     Dates: start: 20180526, end: 20180526
  10. EYLEA [Suspect]
     Active Substance: AFLIBERCEPT
     Dosage: 2 MG
     Route: 031
     Dates: start: 20180305, end: 20180305
  11. EYLEA [Suspect]
     Active Substance: AFLIBERCEPT
     Indication: NEOVASCULAR AGE-RELATED MACULAR DEGENERATION
     Dosage: 2 MG
     Route: 031
     Dates: start: 20160729, end: 20160729
  12. EYLEA [Suspect]
     Active Substance: AFLIBERCEPT
     Dosage: 2 MG
     Route: 031
     Dates: start: 20160826, end: 20160826
  13. EYLEA [Suspect]
     Active Substance: AFLIBERCEPT
     Dosage: 2 MG
     Route: 031
     Dates: start: 20160926, end: 20160926

REACTIONS (1)
  - Death [Fatal]

NARRATIVE: CASE EVENT DATE: 20190321
